FAERS Safety Report 8521816-6 (Version None)
Quarter: 2012Q3

REPORT INFORMATION
  Report Type: 
  Country: None (occurrence: None)
  Receive Date: 20120719
  Receipt Date: 20120410
  Transmission Date: 20120928
  Serious: No
  Sender: FDA-Public Use
  Company Number: US-BRISTOL-MYERS SQUIBB COMPANY-16510992

PATIENT
  Age: 79 Year
  Sex: Female

DRUGS (3)
  1. YERVOY [Suspect]
     Dosage: 4TH + LAST INF: 9APR12
  2. COUMADIN [Concomitant]
  3. VOLTAREN [Concomitant]

REACTIONS (1)
  - PSORIASIS [None]
